FAERS Safety Report 7070910-8 (Version None)
Quarter: 2010Q4

REPORT INFORMATION
  Report Type: 
  Country: None (occurrence: None)
  Receive Date: 20101029
  Receipt Date: 20101019
  Transmission Date: 20110411
  Serious: Yes (Other)
  Sender: FDA-Public Use
  Company Number: PHHY2010US70161

PATIENT
  Sex: Male

DRUGS (8)
  1. RECLAST [Suspect]
     Indication: OSTEOPOROSIS
     Dosage: 5 MG
     Route: 042
     Dates: start: 20090812
  2. FLONASE [Concomitant]
  3. LEVOXYL [Concomitant]
  4. AMBIEN [Concomitant]
  5. SINGULAIR [Concomitant]
  6. CYCLOBENZAPRINE [Concomitant]
  7. LEXAPRO [Concomitant]
  8. VITAMIN D [Concomitant]

REACTIONS (2)
  - FORAMINOTOMY [None]
  - LUMBAR SPINAL STENOSIS [None]
